FAERS Safety Report 7718355-9 (Version None)
Quarter: 2011Q3

REPORT INFORMATION
  Report Type: 
  Country: None (occurrence: None)
  Receive Date: 20110830
  Receipt Date: 20110824
  Transmission Date: 20111222
  Serious: Yes (Life-Threatening, Other)
  Sender: FDA-Public Use
  Company Number: PHHY2011BR47951

PATIENT
  Sex: Female

DRUGS (4)
  1. PROPRANOLOL [Concomitant]
     Indication: HYPERTENSION
     Dosage: 1 DF, DAILY (40 MG)
     Route: 048
     Dates: start: 20080101
  2. DIOVAN [Suspect]
     Indication: HYPERTENSION
     Dosage: 1 DF, DAILY (320 MG)
     Route: 048
     Dates: start: 20080101
  3. DIOVAN [Suspect]
     Dosage: 1 DF, DAILY (80 MG)
     Route: 048
     Dates: start: 20100101
  4. GLYBURIDE [Concomitant]
     Indication: DIABETES MELLITUS
     Dosage: 2 DF (2 IN THE MORNING AND 2 AT NIGHT), BID
     Route: 048
     Dates: start: 20091101

REACTIONS (3)
  - DIABETES MELLITUS [None]
  - BLOOD GLUCOSE INCREASED [None]
  - BLOOD PRESSURE INCREASED [None]
